FAERS Safety Report 22116817 (Version 3)
Quarter: 2023Q2

REPORT INFORMATION
  Report Type: Report from Study
  Country: CA (occurrence: CA)
  Receive Date: 20230320
  Receipt Date: 20230501
  Transmission Date: 20230722
  Serious: Yes (Death, Other)
  Sender: FDA-Public Use
  Company Number: CA-HLS-202300635

PATIENT
  Age: 61 Year
  Sex: Male

DRUGS (3)
  1. CLOZARIL [Suspect]
     Active Substance: CLOZAPINE
     Indication: Bipolar disorder
     Route: 048
     Dates: start: 19970107
  2. CLOZARIL [Suspect]
     Active Substance: CLOZAPINE
     Indication: Bipolar disorder
     Dosage: 25 MG AM AND 225 MG AT SUPPER
     Route: 048
     Dates: end: 20230319
  3. CEFPROZIL [Concomitant]
     Active Substance: CEFPROZIL
     Indication: Product used for unknown indication
     Route: 065

REACTIONS (4)
  - Haemoglobin decreased [Unknown]
  - Off label use [Unknown]
  - Platelet count increased [Unknown]
  - Urinary tract infection [Fatal]

NARRATIVE: CASE EVENT DATE: 20230303
